FAERS Safety Report 8198371-6 (Version None)
Quarter: 2012Q1

REPORT INFORMATION
  Report Type: 
  Country: None (occurrence: None)
  Receive Date: 20120309
  Receipt Date: 20120305
  Transmission Date: 20120608
  Serious: Yes (Hospitalization)
  Sender: FDA-Public Use
  Company Number: PHHY2011CA63588

PATIENT
  Sex: Female

DRUGS (10)
  1. VITAMIN D [Concomitant]
     Dosage: UNK UKN, UNK
  2. VITAMIN B COMPLEX CAP [Concomitant]
     Dosage: UNK UKN, UNK
  3. MULTI-VITAMINS [Concomitant]
     Dosage: UNK UKN, UNK
  4. CRANBERRIES [Concomitant]
     Dosage: UNK UKN, UNK
  5. TYLENOL [Concomitant]
     Dosage: 1000 MG, UNK
  6. GILENYA [Suspect]
     Dosage: 0.5 MG, BID
     Route: 048
     Dates: start: 20110725
  7. BACLOFEN [Concomitant]
     Dosage: UNK UKN, UNK
  8. CALCIUM [Concomitant]
     Dosage: UNK UKN, UNK
  9. ASCORBIC ACID [Concomitant]
     Dosage: UNK UKN, UNK
  10. GILENYA [Suspect]
     Indication: RELAPSING-REMITTING MULTIPLE SCLEROSIS
     Dosage: 0.5 MG, DAILY
     Route: 048
     Dates: start: 20110711

REACTIONS (15)
  - FIBROMYALGIA [None]
  - PAIN [None]
  - FALL [None]
  - OSTEOPOROSIS [None]
  - OVERDOSE [None]
  - FRACTURE [None]
  - FATIGUE [None]
  - HEADACHE [None]
  - DIZZINESS [None]
  - PERIPHERAL COLDNESS [None]
  - NAUSEA [None]
  - EYE OEDEMA [None]
  - FEELING COLD [None]
  - SOMNOLENCE [None]
  - OEDEMA PERIPHERAL [None]
